FAERS Safety Report 7834536-8 (Version None)
Quarter: 2011Q4

REPORT INFORMATION
  Report Type: 
  Country: None (occurrence: None)
  Receive Date: 20111024
  Receipt Date: 20111019
  Transmission Date: 20120403
  Serious: Yes (Hospitalization)
  Sender: FDA-Public Use
  Company Number: AU-B.I. PHARMACEUTICALS,INC./RIDGEFIELD-2011-AU-01772AU

PATIENT
  Sex: Female

DRUGS (14)
  1. RABEPRAZOLE SODIUM [Concomitant]
     Dosage: 40 MG
     Route: 048
  2. VITAMIN D [Concomitant]
     Dosage: 1000 U
     Route: 048
  3. PRADAXA [Suspect]
     Indication: ATRIAL FIBRILLATION
     Dosage: 300 MG
     Dates: start: 20110815, end: 20111004
  4. METFORMIN HCL [Concomitant]
     Dosage: 1000 MG
     Route: 048
  5. LIPITOR [Concomitant]
     Dosage: 40 MG
     Route: 048
  6. MONODUR SR [Concomitant]
     Dosage: 120 MG
     Route: 048
  7. MONODUR SR [Concomitant]
     Dosage: 60 MG
     Route: 048
  8. OLMESARTAN MEDOXOMIL AND HYDROCHLOROTHIZIDE [Concomitant]
     Dosage: 40/12.5 MG DAILY
     Route: 048
  9. PROTOS [Concomitant]
     Dosage: 2 G
     Route: 048
  10. FLUTICASONE PROPIONATE/SALMETEROL [Concomitant]
     Dosage: 250/50 MCG TWICE DAILY
     Route: 055
  11. CARDIZEM CD [Concomitant]
     Dosage: 180 MG
     Route: 048
  12. TEMAZE [Concomitant]
     Dosage: 5 MG
     Route: 048
  13. NITROLINGUAL PUMPSPRAY [Concomitant]
     Dosage: 400 MCG
     Route: 060
  14. NOTEN [Concomitant]
     Dosage: 50 MG
     Route: 048

REACTIONS (1)
  - TRANSIENT ISCHAEMIC ATTACK [None]
